FAERS Safety Report 8433320-4 (Version None)
Quarter: 2012Q2

REPORT INFORMATION
  Report Type: 
  Country: None (occurrence: None)
  Receive Date: 20120323
  Receipt Date: 20110825
  Transmission Date: 20120825
  Serious: Yes (Hospitalization, Other)
  Sender: FDA-Public Use
  Company Number: 163-21880-11083211

PATIENT
  Age: 87 Year
  Sex: Male
  Weight: 79.3795 kg

DRUGS (3)
  1. CIPRO [Concomitant]
  2. REVLIMID [Suspect]
     Indication: MYELODYSPLASTIC SYNDROME
     Dosage: 10 MG, 1 IN 1 D 5 MG, 1 IN 1 D
     Dates: start: 20110805, end: 20110809
  3. REVLIMID [Suspect]
     Indication: MYELODYSPLASTIC SYNDROME
     Dosage: 10 MG, 1 IN 1 D 5 MG, 1 IN 1 D
     Dates: start: 20110601, end: 20110701

REACTIONS (5)
  - TREATMENT FAILURE [None]
  - PNEUMONIA [None]
  - NEUTROPENIA [None]
  - ANAEMIA [None]
  - CARDIAC FAILURE CONGESTIVE [None]
